FAERS Safety Report 5295668-4 (Version None)
Quarter: 2007Q2

REPORT INFORMATION
  Report Type: 
  Country: None (occurrence: None)
  Receive Date: 20070410
  Receipt Date: 20070410
  Transmission Date: 20071010
  Serious: Yes (Hospitalization)
  Sender: FDA-Public Use
  Company Number: None

PATIENT
  Sex: Female

DRUGS (16)
  1. REVLIMID [Suspect]
     Indication: MULTIPLE MYELOMA
     Dosage: 10MG DAILY PO
     Route: 048
  2. VELCADE [Concomitant]
  3. DECADRON [Concomitant]
  4. LASIX [Concomitant]
  5. KEFLEX [Concomitant]
  6. CALCITONIN-SALMON [Concomitant]
  7. ALLOPURINOL [Concomitant]
  8. K-TAB [Concomitant]
  9. LEVOTHROID [Concomitant]
  10. LOVASTATIN [Concomitant]
  11. WARFARIN SODIUM [Concomitant]
  12. ENDOCET [Concomitant]
  13. HYDRALAZINE HCL [Concomitant]
  14. MIACALCIN [Concomitant]
  15. ZOMETA [Concomitant]
  16. ANZEMET [Concomitant]

REACTIONS (4)
  - CELLULITIS [None]
  - HYPERCALCAEMIA [None]
  - MALIGNANT NEOPLASM PROGRESSION [None]
  - MULTIPLE MYELOMA [None]
